FAERS Safety Report 7371794-0 (Version None)
Quarter: 2011Q1

REPORT INFORMATION
  Report Type: 
  Country: None (occurrence: None)
  Receive Date: 20110324
  Receipt Date: 20110321
  Transmission Date: 20110831
  Serious: Yes (Hospitalization)
  Sender: FDA-Public Use
  Company Number: RU-ROCHE-765805

PATIENT
  Age: 40 Year
  Sex: Male

DRUGS (2)
  1. ZEFFIX [Concomitant]
     Indication: HEPATITIS B
     Dates: start: 20090101, end: 20090101
  2. PEGASYS [Suspect]
     Route: 058
     Dates: start: 20070101, end: 20110207

REACTIONS (7)
  - JAUNDICE [None]
  - ALANINE AMINOTRANSFERASE INCREASED [None]
  - PRURITUS [None]
  - RESPIRATORY TRACT INFECTION VIRAL [None]
  - HAEMOLYTIC ANAEMIA [None]
  - BLOOD BILIRUBIN INCREASED [None]
  - ASPARTATE AMINOTRANSFERASE INCREASED [None]
